FAERS Safety Report 14252914 (Version 1)
Quarter: 2017Q4

REPORT INFORMATION
  Report Type: Spontaneous
  Country: US (occurrence: US)
  Receive Date: 20171206
  Receipt Date: 20171206
  Transmission Date: 20180321
  Serious: Yes (Death)
  Sender: FDA-Public Use
  Company Number: US-CIPLA (EU) LIMITED-2016US10563

PATIENT

DRUGS (6)
  1. SIMVASTATIN. [Suspect]
     Active Substance: SIMVASTATIN
     Dosage: UNK
     Route: 048
  2. METFORMIN HYDROCHLORIDE. [Suspect]
     Active Substance: METFORMIN HYDROCHLORIDE
     Dosage: UNK
     Route: 048
  3. ROSIGLITAZONE [Suspect]
     Active Substance: ROSIGLITAZONE
     Dosage: UNK
     Route: 048
  4. METOPROLOL. [Suspect]
     Active Substance: METOPROLOL
     Dosage: UNK
     Route: 048
  5. CLONIDINE. [Suspect]
     Active Substance: CLONIDINE
     Dosage: UNK
     Route: 048
  6. AMLODIPINE [Suspect]
     Active Substance: AMLODIPINE BESYLATE
     Dosage: UNKNOWN
     Route: 048
     Dates: end: 2007

REACTIONS (2)
  - Toxicity to various agents [Fatal]
  - Completed suicide [Fatal]
